FAERS Safety Report 5835632-7 (Version None)
Quarter: 2008Q3

REPORT INFORMATION
  Report Type: 
  Country: None (occurrence: None)
  Receive Date: 20080801
  Receipt Date: 20080721
  Transmission Date: 20090109
  Serious: Yes (Other)
  Sender: FDA-Public Use
  Company Number: 2008015220

PATIENT
  Age: 55 Year
  Sex: Female

DRUGS (11)
  1. ZYRTEC [Suspect]
     Indication: DRUG USE FOR UNKNOWN INDICATION
  2. LYRICA [Suspect]
     Indication: FIBROMYALGIA
     Dosage: 100 MG UNK (50 MG, 2 IN 1 D), ORAL
     Route: 047
     Dates: start: 20071201
  3. LYRICA [Suspect]
     Indication: SCIATICA
     Dosage: 100 MG UNK (50 MG, 2 IN 1 D), ORAL
     Route: 047
     Dates: start: 20071201
  4. WELLBUTRIN XL [Concomitant]
  5. NEFAZODONE HCL [Concomitant]
  6. PROTONIX [Concomitant]
  7. COLACE (DOCUSATE SODIUM) [Concomitant]
  8. FLEXERIL [Concomitant]
  9. ASTHALIN (SALBUTAMOL) [Concomitant]
  10. LOVAZA [Concomitant]
  11. CALCIUM (CALCIUM) [Concomitant]

REACTIONS (5)
  - BLOOD CHOLESTEROL INCREASED [None]
  - DRUG INEFFECTIVE [None]
  - FATIGUE [None]
  - OEDEMA PERIPHERAL [None]
  - PAIN [None]
